FAERS Safety Report 25983035 (Version 1)
Quarter: 2025Q4

REPORT INFORMATION
  Report Type: Spontaneous
  Country: CA (occurrence: CA)
  Receive Date: 20251031
  Receipt Date: 20251031
  Transmission Date: 20260117
  Serious: Yes (Other)
  Sender: TEVA
  Company Number: CA-TEVA-VS-3386846

PATIENT
  Age: 68 Year
  Sex: Male

DRUGS (1)
  1. NAPROXEN [Suspect]
     Active Substance: NAPROXEN
     Indication: Back pain
     Dosage: DOSE FORM: NOT SPECIFIED
     Route: 065

REACTIONS (6)
  - Electrocardiogram ST segment elevation [Unknown]
  - Drug hypersensitivity [Unknown]
  - Urticaria [Unknown]
  - Hypotension [Unknown]
  - Chest pain [Unknown]
  - Wheezing [Unknown]
